FAERS Safety Report 24354071 (Version 1)
Quarter: 2024Q3

REPORT INFORMATION
  Report Type: Spontaneous
  Country: US (occurrence: US)
  Receive Date: 20240923
  Receipt Date: 20240923
  Transmission Date: 20241017
  Serious: Yes (Hospitalization)
  Sender: WALMART
  Company Number: US-Walmart-2161932

PATIENT
  Sex: Male

DRUGS (1)
  1. BISMUTH SUBSALICYLATE [Suspect]
     Active Substance: BISMUTH SUBSALICYLATE
     Indication: Dyspepsia

REACTIONS (3)
  - Brain fog [Recovered/Resolved]
  - Anger [Recovered/Resolved]
  - Taste disorder [Recovered/Resolved]
